FAERS Safety Report 8791748 (Version 2)
Quarter: 2014Q2

REPORT INFORMATION
  Report Type: Spontaneous
  Country: US (occurrence: US)
  Receive Date: 20120918
  Receipt Date: 20140530
  Transmission Date: 20141212
  Serious: Yes (Other)
  Sender: FDA-Public Use
  Company Number: US-ARROW-2012-16005

PATIENT
  Age: 43 Year
  Sex: Female

DRUGS (8)
  1. MORPHINE SULFATE (UNKNOWN) [Suspect]
     Indication: NEURALGIA
     Dosage: 100 MG, BID
     Route: 048
  2. MORPHINE SULFATE (UNKNOWN) [Suspect]
     Dosage: 60 MG, Q2H, PRN
     Route: 060
  3. HYDROMORPHONE HYDROCHLORIDE (WATSON LABORATORIES) [Suspect]
     Indication: NEURALGIA
     Dosage: 8-16 MG, PRN
     Route: 048
  4. GABAPENTIN (AELLC) [Suspect]
     Indication: NEURALGIA
     Dosage: 1200 MG, TID
     Route: 048
  5. IBUPROFEN [Concomitant]
     Indication: NEURALGIA
     Dosage: 800 MG, TID
     Route: 048
  6. OXYCODONE [Concomitant]
     Indication: NEURALGIA
     Dosage: 40 MG, TID
     Route: 048
  7. NORTRIPTYLINE [Concomitant]
     Indication: NEURALGIA
     Dosage: 50 MG, QHS
     Route: 048
  8. CARBAMAZEPINE [Concomitant]
     Indication: NEURALGIA
     Dosage: 200 MG, BID
     Route: 048

REACTIONS (3)
  - Allodynia [Recovered/Resolved]
  - Oedema peripheral [Unknown]
  - Abnormal dreams [Unknown]
